FAERS Safety Report 9436526 (Version 1)
Quarter: 2013Q3

REPORT INFORMATION
  Report Type: Spontaneous
  Country: US (occurrence: US)
  Receive Date: 20130802
  Receipt Date: 20130802
  Transmission Date: 20140515
  Serious: No
  Sender: FDA-Public Use
  Company Number: US-OPTIMER-20130077

PATIENT
  Age: 46 Year
  Sex: Female
  Weight: 131.52 kg

DRUGS (6)
  1. DIFICID [Suspect]
     Indication: CLOSTRIDIUM DIFFICILE COLITIS
     Dosage: 200 MG, BID
     Route: 048
     Dates: start: 201302, end: 20130310
  2. FLORANEX [Concomitant]
     Indication: PROBIOTIC THERAPY
     Dosage: 200 MG, QID
     Route: 048
     Dates: start: 20121227
  3. SYNTHROID [Concomitant]
     Indication: BASEDOW^S DISEASE
     Dosage: 250 MCG, QD
     Route: 048
     Dates: start: 1994
  4. MOTRIN [Concomitant]
     Indication: ARTHRITIS
     Dosage: 800 MG, BID PRN UP TO 4X/WK
     Route: 048
  5. ATIVAN [Concomitant]
     Indication: BENIGN INTRACRANIAL HYPERTENSION
     Dosage: UNK
     Route: 048
  6. MULTIVITAMIN [Concomitant]
     Dosage: UNK
     Route: 048

REACTIONS (4)
  - Diarrhoea [Not Recovered/Not Resolved]
  - Abdominal pain [Not Recovered/Not Resolved]
  - Dyspepsia [Not Recovered/Not Resolved]
  - Inappropriate schedule of drug administration [Recovered/Resolved]
